FAERS Safety Report 17518210 (Version 1)
Quarter: 2020Q1

REPORT INFORMATION
  Report Type: Spontaneous
  Country: FR (occurrence: FR)
  Receive Date: 20200309
  Receipt Date: 20200309
  Transmission Date: 20200409
  Serious: Yes (Life-Threatening, Hospitalization)
  Sender: FDA-Public Use
  Company Number: FR-ASTRAZENECA-2020SE35055

PATIENT
  Sex: Male

DRUGS (2)
  1. FASENRA [Suspect]
     Active Substance: BENRALIZUMAB
     Route: 058
     Dates: start: 20191015
  2. POSACONAZOLE [Concomitant]
     Active Substance: POSACONAZOLE
     Dates: start: 20191015

REACTIONS (3)
  - Renal failure [Unknown]
  - Rhabdomyolysis [Unknown]
  - Influenza [Unknown]
